FAERS Safety Report 16916469 (Version 1)
Quarter: 2019Q4

REPORT INFORMATION
  Report Type: Report from Study
  Country: US (occurrence: US)
  Receive Date: 20191014
  Receipt Date: 20191014
  Transmission Date: 20200122
  Serious: Yes (Hospitalization, Other)
  Sender: FDA-Public Use
  Company Number: US-TAKEDA-2018TUS031707

PATIENT
  Age: 44 Year
  Sex: Female

DRUGS (9)
  1. VITAMIN E                          /00110501/ [Concomitant]
     Active Substance: TOCOPHEROL
     Dosage: UNK
  2. ACYCLOVIR                          /00587301/ [Concomitant]
     Active Substance: ACYCLOVIR
     Dosage: UNK
  3. SINGULAIR [Concomitant]
     Active Substance: MONTELUKAST SODIUM
     Dosage: UNK
  4. ATIVAN [Concomitant]
     Active Substance: LORAZEPAM
     Dosage: UNK
  5. PONATINIB [Suspect]
     Active Substance: PONATINIB
     Indication: ACUTE LYMPHOCYTIC LEUKAEMIA
  6. VITAMIN D3 [Concomitant]
     Active Substance: CHOLECALCIFEROL
     Dosage: UNK
  7. PONATINIB [Suspect]
     Active Substance: PONATINIB
     Indication: DIFFUSE LARGE B-CELL LYMPHOMA
     Dosage: 30 MILLIGRAM, QD
     Route: 048
     Dates: start: 20190214
  8. PREDNISONE. [Concomitant]
     Active Substance: PREDNISONE
     Dosage: UNK
  9. PONATINIB [Suspect]
     Active Substance: PONATINIB
     Indication: NON-HODGKIN^S LYMPHOMA
     Dosage: 15 MG, QD
     Route: 048
     Dates: start: 20181018

REACTIONS (26)
  - Osteogenesis imperfecta [Unknown]
  - Haematocrit abnormal [Unknown]
  - Mean cell volume abnormal [Unknown]
  - Pulmonary mass [Unknown]
  - Graft versus host disease [Unknown]
  - Malaise [Unknown]
  - Peripheral swelling [Unknown]
  - Blood lactate dehydrogenase abnormal [Unknown]
  - Pneumonia [Unknown]
  - Hypertension [Unknown]
  - Paraesthesia [Unknown]
  - Bronchitis [Unknown]
  - Speech disorder [Unknown]
  - White blood cell count abnormal [Unknown]
  - Platelet count decreased [Unknown]
  - Laboratory test abnormal [Unknown]
  - Red blood cell count abnormal [Unknown]
  - Anion gap abnormal [Unknown]
  - Off label use [Unknown]
  - Haemoglobin abnormal [Unknown]
  - Mean platelet volume abnormal [Unknown]
  - Blood glucose abnormal [Unknown]
  - Alanine aminotransferase abnormal [Unknown]
  - Sensory loss [Unknown]
  - Somnolence [Unknown]
  - Visual impairment [Unknown]

NARRATIVE: CASE EVENT DATE: 20181018
